FAERS Safety Report 26154741 (Version 1)
Quarter: 2025Q4

REPORT INFORMATION
  Report Type: Spontaneous
  Country: US (occurrence: None)
  Receive Date: 20251215
  Receipt Date: 20251215
  Transmission Date: 20260117
  Serious: Yes (Hospitalization, Other)
  Sender: APOTEX
  Company Number: US-APOTEX-2025AP034002

PATIENT
  Age: 47 Year
  Sex: Female

DRUGS (1)
  1. SOTALOL [Suspect]
     Active Substance: SOTALOL
     Indication: Product used for unknown indication
     Dosage: 3.6 GRAM
     Route: 061

REACTIONS (11)
  - Overdose [Unknown]
  - Bundle branch block right [Unknown]
  - Electrocardiogram PR prolongation [Unknown]
  - Cardiogenic shock [Unknown]
  - Pacemaker generated arrhythmia [Unknown]
  - Haemodynamic instability [Unknown]
  - Mental status changes [Unknown]
  - Hypotension [Unknown]
  - Electrocardiogram QT prolonged [Recovered/Resolved]
  - Bradycardia [Unknown]
  - Torsade de pointes [Unknown]
